FAERS Safety Report 8919535 (Version 1)
Quarter: 2012Q4

REPORT INFORMATION
  Report Type: 
  Country: US (occurrence: US)
  Receive Date: 20121121
  Receipt Date: 20121121
  Transmission Date: 20130627
  Serious: Yes (Other)
  Sender: FDA-Public Use
  Company Number: US-009507513-1211USA007522

PATIENT
  Age: 65 Year
  Sex: Female

DRUGS (7)
  1. INTEGRILIN [Suspect]
     Indication: ANTICOAGULANT THERAPY
  2. ASPIRIN [Concomitant]
  3. HEPARIN [Concomitant]
  4. CLOPIDOGREL [Concomitant]
  5. TAXOTERE [Concomitant]
  6. CARBOPLATIN [Concomitant]
  7. BIVALIRUDIN [Concomitant]

REACTIONS (6)
  - Body temperature fluctuation [Recovered/Resolved]
  - Oedema peripheral [Recovered/Resolved]
  - Pallor [Recovered/Resolved]
  - Embolism venous [Recovered/Resolved]
  - Haptoglobin increased [Recovered/Resolved]
  - Thrombocytopenia [Recovered/Resolved]
